FAERS Safety Report 9712137 (Version 1)
Quarter: 2013Q4

REPORT INFORMATION
  Report Type: Report from Study
  Country: DE (occurrence: DE)
  Receive Date: 20131126
  Receipt Date: 20131126
  Transmission Date: 20140711
  Serious: Yes (Other)
  Sender: FDA-Public Use
  Company Number: DE-B.I. PHARMACEUTICALS,INC./RIDGEFIELD-2013-BI-38254DE

PATIENT
  Sex: Male
  Weight: 75 kg

DRUGS (5)
  1. MICARDIS [Suspect]
     Dosage: 560 MG
     Route: 048
     Dates: start: 20130424
  2. TOREM [Suspect]
     Dosage: 60 ANZ
     Route: 048
     Dates: start: 20130824
  3. METFORMIN [Suspect]
     Dosage: 12 ANZ
     Route: 048
  4. LOSARTAN [Suspect]
     Dosage: 1400 MG
     Dates: start: 20130424
  5. HCT [Suspect]
     Dosage: 350 MG
     Route: 048
     Dates: start: 20130424

REACTIONS (2)
  - Suicidal ideation [Recovered/Resolved]
  - Intentional overdose [Recovered/Resolved]
